FAERS Safety Report 8605778-9 (Version None)
Quarter: 2012Q3

REPORT INFORMATION
  Report Type: 
  Country: None (occurrence: None)
  Receive Date: 20120820
  Receipt Date: 20120814
  Transmission Date: 20120928
  Serious: No
  Sender: FDA-Public Use
  Company Number: US-PFIZER INC-2012199574

PATIENT
  Age: 3 Year
  Sex: Female
  Weight: 9.977 kg

DRUGS (3)
  1. ALCOHOL [Suspect]
     Indication: THERAPEUTIC PROCEDURE
     Dosage: UNK
  2. GENOTROPIN [Suspect]
     Indication: GROWTH RETARDATION
     Dosage: 0.4 MG, DAILY
     Dates: start: 20120730
  3. ALLEGRA [Concomitant]
     Indication: BRONCHIOLITIS
     Dosage: UNK, DAILY

REACTIONS (1)
  - INJECTION SITE RASH [None]
